FAERS Safety Report 9325959 (Version 1)
Quarter: 2013Q2

REPORT INFORMATION
  Report Type: Spontaneous
  Country: US (occurrence: None)
  Receive Date: 20130603
  Receipt Date: 20130603
  Transmission Date: 20140414
  Serious: Yes (Hospitalization, Disabling)
  Sender: FDA-Public Use
  Company Number: None

PATIENT
  Age: 71 Year
  Sex: Male
  Weight: 96.62 kg

DRUGS (1)
  1. LEVOFLOXACIN [Suspect]
     Dates: start: 20130418, end: 20130421

REACTIONS (5)
  - Feeling abnormal [None]
  - Tendon rupture [None]
  - Flatulence [None]
  - Muscular weakness [None]
  - Night sweats [None]
